FAERS Safety Report 5138802-9 (Version None)
Quarter: 2006Q4

REPORT INFORMATION
  Report Type: 
  Country: None (occurrence: None)
  Receive Date: 20061030
  Receipt Date: 20061023
  Transmission Date: 20070319
  Serious: Yes (Other)
  Sender: FDA-Public Use
  Company Number: 2006UW20625

PATIENT
  Age: 48 Year
  Sex: Female

DRUGS (4)
  1. ZOMIG [Suspect]
     Route: 048
  2. APO-VERAP [Suspect]
  3. NEXIUM [Concomitant]
     Route: 048
  4. PENNSAID [Concomitant]
     Route: 061

REACTIONS (4)
  - APHASIA [None]
  - DISORIENTATION [None]
  - TONGUE DISCOLOURATION [None]
  - TONGUE OEDEMA [None]
